FAERS Safety Report 7983680-3 (Version None)
Quarter: 2011Q4

REPORT INFORMATION
  Report Type: 
  Country: None (occurrence: None)
  Receive Date: 20111215
  Receipt Date: 20111205
  Transmission Date: 20120403
  Serious: Yes (Hospitalization)
  Sender: FDA-Public Use
  Company Number: US-AMGEN-USASP2011064468

PATIENT
  Age: 62 Year
  Sex: Female
  Weight: 89 kg

DRUGS (27)
  1. ATIVAN [Concomitant]
     Indication: ANXIETY
     Dosage: 0.25 MG, Q8H
  2. AMLODIPINE [Concomitant]
     Dosage: 10 MG, QD
  3. HYDRALAZINE HCL [Concomitant]
     Dosage: 25 MG, BID
  4. VICODIN [Concomitant]
     Indication: PAIN
     Dosage: UNK UNK, PRN
  5. LANTUS [Concomitant]
     Dosage: 25 IU, QD
  6. VITAMIN D [Concomitant]
     Dosage: 2000 IU, QD
  7. TRAZODONE HCL [Concomitant]
     Indication: INSOMNIA
     Dosage: 25 MG, PRN
  8. PROCRIT [Suspect]
     Indication: RENAL FAILURE CHRONIC
     Dosage: 10000 IU, QWK
     Dates: end: 20111101
  9. NYSTATIN [Concomitant]
     Dosage: UNK UNK, TID
     Route: 061
  10. PREDNISONE [Concomitant]
     Dosage: 10 MG, QD
  11. HUMULIN R [Concomitant]
     Dosage: UNK
  12. NEURONTIN [Concomitant]
     Dosage: 100 MG, TID
  13. PROCRIT [Suspect]
     Dosage: 10000 IU, Q12H
     Route: 058
     Dates: start: 20111202
  14. ACIDOPHILUS [Concomitant]
     Dosage: UNK UNK, BID
  15. IMDUR [Concomitant]
     Dosage: 30 MG, QD
  16. METAMUCIL-2 [Concomitant]
     Dosage: UNK
  17. CALCIUM WITH VITAMIN D [Concomitant]
     Dosage: UNK UNK, BID
  18. LASIX [Concomitant]
     Dosage: 20 MG, QD
  19. LANTUS [Concomitant]
     Dosage: 10 IU, QD
  20. FLOMAX [Concomitant]
     Dosage: 0.4 MG, QD
  21. ATARAX [Concomitant]
     Indication: PRURITUS
     Dosage: 25 MG, Q6H
  22. LOPID [Concomitant]
     Dosage: 600 MG, BID
  23. FERROUS GLUCONATE [Concomitant]
     Dosage: 325 MG, BID
  24. METOPROLOL TARTRATE [Concomitant]
     Dosage: 50 MG, Q8H
  25. PROTONIX [Concomitant]
     Dosage: 40 MG, BID
  26. SYNTHROID [Concomitant]
     Dosage: 100 MUG, QD
  27. ALLOPURINOL [Concomitant]
     Dosage: 200 MG, QD

REACTIONS (1)
  - RENAL FAILURE ACUTE [None]
